FAERS Safety Report 5678798-4 (Version None)
Quarter: 2008Q1

REPORT INFORMATION
  Report Type: 
  Country: None (occurrence: None)
  Receive Date: 20080324
  Receipt Date: 20080324
  Transmission Date: 20080703
  Serious: No
  Sender: FDA-Public Use
  Company Number: None

PATIENT
  Age: 24 Month
  Sex: Male
  Weight: 12.7007 kg

DRUGS (4)
  1. SINGULAIR [Suspect]
     Indication: MULTIPLE ALLERGIES
     Dosage: 1 TABLET ONCE A DAY PO
     Route: 048
     Dates: start: 20070401, end: 20070415
  2. SINGULAIR [Suspect]
     Indication: WHEEZING
     Dosage: 1 TABLET ONCE A DAY PO
     Route: 048
     Dates: start: 20070401, end: 20070415
  3. SINGULAIR [Suspect]
     Indication: MULTIPLE ALLERGIES
     Dosage: 1 TABLET ONCE A DAY PO
     Route: 048
     Dates: start: 20080301, end: 20080315
  4. SINGULAIR [Suspect]
     Indication: WHEEZING
     Dosage: 1 TABLET ONCE A DAY PO
     Route: 048
     Dates: start: 20080301, end: 20080315

REACTIONS (3)
  - AGGRESSION [None]
  - IRRITABILITY [None]
  - MOOD ALTERED [None]
